FAERS Safety Report 6858654-6 (Version None)
Quarter: 2010Q3

REPORT INFORMATION
  Report Type: 
  Country: None (occurrence: None)
  Receive Date: 20100719
  Receipt Date: 20080208
  Transmission Date: 20110219
  Serious: No
  Sender: FDA-Public Use
  Company Number: US-PFIZER INC-2008014166

PATIENT
  Sex: Male
  Weight: 79.545 kg

DRUGS (9)
  1. CHANTIX [Suspect]
     Indication: SMOKING CESSATION THERAPY
     Dates: start: 20071225
  2. METFORMIN HCL [Concomitant]
  3. SERTRALINE HCL [Concomitant]
  4. FELODIPINE [Concomitant]
  5. ACCUPRIL [Concomitant]
  6. PLAVIX [Concomitant]
  7. SIMVASTATIN [Concomitant]
  8. HYDROCHLOROTHIAZIDE [Concomitant]
  9. OPHTHALMOLOGICALS [Concomitant]

REACTIONS (3)
  - FATIGUE [None]
  - HYPERSOMNIA [None]
  - LETHARGY [None]
